FAERS Safety Report 8902376 (Version 1)
Quarter: 2012Q4

REPORT INFORMATION
  Report Type: 
  Country: BR (occurrence: BR)
  Receive Date: 20121112
  Receipt Date: 20121112
  Transmission Date: 20130627
  Serious: Yes (Other)
  Sender: FDA-Public Use
  Company Number: BR-PFIZER INC-2012280666

PATIENT
  Age: 70 Year
  Sex: Male
  Weight: 82 kg

DRUGS (3)
  1. CARDURAN NEO [Suspect]
     Dosage: UNK
     Dates: start: 2007
  2. LIPITOR [Concomitant]
     Dosage: UNK
  3. HYZAAR [Concomitant]
     Dosage: UNK

REACTIONS (1)
  - Cataract [Unknown]
